FAERS Safety Report 4888353-1 (Version None)
Quarter: 2006Q1

REPORT INFORMATION
  Report Type: 
  Country: None (occurrence: None)
  Receive Date: 20060123
  Receipt Date: 20051108
  Transmission Date: 20060701
  Serious: Yes (Death, Life-Threatening, Hospitalization)
  Sender: FDA-Public Use
  Company Number: US-SANOFI-SYNTHELABO-F01200502365

PATIENT
  Sex: Male

DRUGS (29)
  1. CLOPIDOGREL [Suspect]
     Indication: ACUTE CORONARY SYNDROME
     Dosage: UNK
     Dates: start: 20050929
  2. ASPIRIN [Concomitant]
     Indication: PROPHYLAXIS
     Dosage: UNK
     Route: 065
     Dates: start: 20050927
  3. LORAZEPAM [Concomitant]
     Indication: AGITATION
     Dosage: UNK
     Route: 065
     Dates: start: 20051002
  4. LISINOPRIL [Concomitant]
     Indication: HYPERTENSION
     Dosage: UNK
     Route: 065
     Dates: start: 20030101, end: 20050927
  5. CLONIDINE [Concomitant]
     Indication: HYPERTENSION
     Dosage: UNK
     Route: 065
     Dates: start: 19990101
  6. HYDROCHLOROTHIAZID [Concomitant]
     Indication: HYPERTENSION
     Dosage: UNK
     Route: 065
     Dates: start: 19990101
  7. NIACIN [Concomitant]
     Indication: BLOOD CHOLESTEROL INCREASED
     Dosage: UNK
     Route: 065
     Dates: start: 20050930
  8. DEMEROL [Concomitant]
     Indication: PAIN
     Dosage: UNK
     Route: 065
     Dates: start: 20050927, end: 20050930
  9. PHENERGAN [Concomitant]
     Indication: NAUSEA
     Dosage: UNK
     Route: 065
     Dates: start: 20050927, end: 20050927
  10. FLAGYL [Concomitant]
     Indication: INFECTION
     Dosage: UNK
     Route: 065
     Dates: start: 20050927, end: 20050930
  11. FLAGYL [Concomitant]
     Dosage: UNK
     Route: 065
     Dates: start: 20051002
  12. LEVAQUIN [Concomitant]
     Indication: INFECTION
     Dosage: UNK
     Route: 065
     Dates: start: 20050927, end: 20050930
  13. LEVAQUIN [Concomitant]
     Dosage: UNK
     Route: 065
     Dates: start: 20051002
  14. PROTONIX [Concomitant]
     Indication: GASTROOESOPHAGEAL REFLUX DISEASE
     Dosage: UNK
     Route: 065
     Dates: start: 20050928, end: 20050930
  15. LOVENOX [Concomitant]
     Indication: PULMONARY EMBOLISM
     Dosage: UNK
     Route: 065
     Dates: start: 20050928, end: 20050930
  16. ACETAMINOPHEN [Concomitant]
     Indication: PAIN
     Dosage: UNK
     Route: 065
     Dates: start: 20050929, end: 20050929
  17. ACETAMINOPHEN [Concomitant]
     Indication: PYREXIA
     Dosage: UNK
     Route: 065
     Dates: start: 20050929, end: 20050929
  18. ACETAMINOPHEN [Concomitant]
     Dosage: UNK
     Route: 065
     Dates: start: 20051003
  19. ACETAMINOPHEN [Concomitant]
     Dosage: UNK
     Route: 065
     Dates: start: 20051003
  20. BENADRYL [Concomitant]
     Indication: ANXIETY
     Dosage: UNK
     Route: 065
     Dates: start: 20050929, end: 20050929
  21. DIAZEPAM [Concomitant]
     Indication: ANXIETY
     Dosage: UNK
     Route: 065
     Dates: start: 20050929, end: 20050929
  22. ACETAMINOPHEN AND CODEINE N3 [Concomitant]
     Indication: PAIN
     Dosage: UNK
     Route: 065
     Dates: start: 20050929, end: 20050929
  23. LASIX [Concomitant]
     Dosage: UNK
     Route: 065
     Dates: start: 20051003
  24. BENADRYL [Concomitant]
     Dosage: UNK
     Route: 065
     Dates: start: 20051003
  25. PEPCID [Concomitant]
     Indication: GASTROOESOPHAGEAL REFLUX DISEASE
     Dosage: UNK
     Route: 065
     Dates: start: 20051003
  26. MORPHINE [Concomitant]
     Indication: PAIN
     Dosage: UNK
     Route: 065
     Dates: start: 20051003
  27. LABETALOL [Concomitant]
     Indication: HYPERTENSION
     Dosage: UNK
     Route: 065
     Dates: start: 20050930
  28. TORADOL [Concomitant]
     Indication: PAIN
     Dosage: UNK
     Route: 065
     Dates: start: 20051002
  29. INTEGRILIN [Concomitant]
     Indication: STENT REMOVAL
     Dosage: UNK
     Route: 065
     Dates: start: 20050929, end: 20050929

REACTIONS (17)
  - ABDOMINAL PAIN UPPER [None]
  - ANAEMIA [None]
  - ARTHRALGIA [None]
  - BACK PAIN [None]
  - CARDIO-RESPIRATORY ARREST [None]
  - CHEST PAIN [None]
  - COMA [None]
  - CULTURE STOOL POSITIVE [None]
  - DIZZINESS [None]
  - DYSPNOEA [None]
  - GASTRIC DISORDER [None]
  - HEADACHE [None]
  - LOWER GASTROINTESTINAL HAEMORRHAGE [None]
  - LYMPHOMA [None]
  - MULTI-ORGAN FAILURE [None]
  - NODULE [None]
  - PAIN IN EXTREMITY [None]
